FAERS Safety Report 4307800-7 (Version None)
Quarter: 2004Q1

REPORT INFORMATION
  Report Type: 
  Country: None (occurrence: None)
  Receive Date: 20040223
  Receipt Date: 20040211
  Transmission Date: 20041129
  Serious: Yes (Other)
  Sender: FDA-Public Use
  Company Number: 601058

PATIENT
  Age: 12 Year
  Sex: Male
  Weight: 50.8029 kg

DRUGS (10)
  1. RECOMBINATE [Suspect]
     Indication: FACTOR VIII DEFICIENCY
     Dosage: 2300 IU; PRN; INTRAVENOUS
     Route: 042
     Dates: start: 20031122, end: 20040105
  2. RECOMBINATE [Suspect]
  3. RECOMBINATE [Suspect]
  4. RECOMBINATE [Suspect]
  5. RECOMBINATE [Suspect]
  6. RECOMBINATE [Suspect]
  7. RECOMBINATE [Concomitant]
  8. RECOMBINATE [Suspect]
  9. RECOMBINATE [Suspect]
  10. AMICAR [Suspect]
     Indication: EPISTAXIS
     Dosage: 3 TAB;Q6H;ORAL
     Route: 048
     Dates: start: 20031122

REACTIONS (6)
  - COAGULATION FACTOR VIII LEVEL DECREASED [None]
  - EPISTAXIS [None]
  - FACE INJURY [None]
  - INHIBITING ANTIBODIES [None]
  - MUSCLE HAEMORRHAGE [None]
  - NAUSEA [None]
